FAERS Safety Report 8516550-2 (Version None)
Quarter: 2012Q3

REPORT INFORMATION
  Report Type: 
  Country: None (occurrence: None)
  Receive Date: 20120718
  Receipt Date: 20120706
  Transmission Date: 20120928
  Serious: Yes (Hospitalization)
  Sender: FDA-Public Use
  Company Number: PT-PAR PHARMACEUTICAL, INC-2012SCPR004499

PATIENT

DRUGS (1)
  1. IBUPROFEN [Suspect]
     Indication: HEADACHE
     Dosage: 400 MG, SINGLE
     Route: 065

REACTIONS (5)
  - CARDIAC ANEURYSM [None]
  - VENTRICULAR EXTRASYSTOLES [None]
  - MYOCARDIAL INFARCTION [None]
  - INTRACARDIAC THROMBUS [None]
  - KOUNIS SYNDROME [None]
